FAERS Safety Report 25975236 (Version 1)
Quarter: 2025Q4

REPORT INFORMATION
  Report Type: Spontaneous
  Country: EU (occurrence: EU)
  Receive Date: 20251029
  Receipt Date: 20251029
  Transmission Date: 20260119
  Serious: Yes (Death, Life-Threatening, Hospitalization)
  Sender: DR REDDYS
  Company Number: None

PATIENT
  Age: 26 Year
  Sex: Female
  Weight: 50 kg

DRUGS (6)
  1. IBUPROFEN [Suspect]
     Active Substance: IBUPROFEN
     Indication: Product used for unknown indication
     Dosage: 504 MG/KG; TOTAL OF 336 PILLS (MULTIPLE DRUGS)
  2. PAROXETINE [Suspect]
     Active Substance: PAROXETINE
     Indication: Product used for unknown indication
     Dosage: 80 MG/KG; TOTAL OF 336 PILLS (MULTIPLE DRUGS)
  3. AGOMELATINE [Suspect]
     Active Substance: AGOMELATINE
     Indication: Product used for unknown indication
     Dosage: 63 MG/KG; TOTAL OF 336 PILLS (MULTIPLE DRUGS)
  4. ACETAMINOPHEN [Suspect]
     Active Substance: ACETAMINOPHEN
     Indication: Product used for unknown indication
     Dosage: 160 MG/KG; TOTAL OF 336 PILLS (MULTIPLE DRUGS)
  5. ASPIRIN [Suspect]
     Active Substance: ASPIRIN
     Indication: Product used for unknown indication
     Dosage: 100 MG/KG; TOTAL OF 336 PILLS (MULTIPLE DRUGS)
  6. CAFFEINE [Suspect]
     Active Substance: CAFFEINE
     Indication: Product used for unknown indication
     Dosage: 20 MG/KG; TOTAL OF 336 PILLS (MULTIPLE DRUGS)

REACTIONS (7)
  - Serotonin syndrome [Fatal]
  - Acute respiratory distress syndrome [Fatal]
  - Toxicity to various agents [Fatal]
  - Intentional overdose [Fatal]
  - Completed suicide [Fatal]
  - Pneumonia aspiration [Fatal]
  - Bezoar [Recovered/Resolved]
